FAERS Safety Report 6981749-3 (Version None)
Quarter: 2010Q3

REPORT INFORMATION
  Report Type: 
  Country: None (occurrence: None)
  Receive Date: 20100914
  Receipt Date: 20091027
  Transmission Date: 20110219
  Serious: No
  Sender: FDA-Public Use
  Company Number: US-PFIZER INC-2009270963

PATIENT
  Sex: Female

DRUGS (16)
  1. LYRICA [Suspect]
     Indication: FIBROMYALGIA
     Dosage: UNK
     Dates: start: 20060501
  2. LYRICA [Suspect]
     Indication: FATIGUE
  3. LIPITOR [Suspect]
     Indication: HYPERCHOLESTEROLAEMIA
     Dosage: 10 MG, 1X/DAY
     Dates: start: 20080301
  4. TRAMADOL [Concomitant]
     Dosage: UNK
  5. NORTRIPTYLINE HCL [Concomitant]
     Dosage: UNK
  6. BENICAR HCT [Concomitant]
     Dosage: UNK
  7. LAMICTAL [Concomitant]
     Dosage: UNK
  8. LIDODERM [Concomitant]
     Dosage: UNK
  9. TOPROL-XL [Concomitant]
     Dosage: UNK
  10. STRATTERA [Concomitant]
     Dosage: UNK
  11. TRICOR [Concomitant]
     Dosage: UNK
  12. LEXAPRO [Concomitant]
     Dosage: UNK
  13. LUNESTA [Concomitant]
     Dosage: UNK
  14. METFORMIN [Concomitant]
     Dosage: UNK
  15. ACIPHEX [Concomitant]
     Dosage: UNK
  16. ELMIRON [Concomitant]
     Dosage: UNK

REACTIONS (5)
  - GAIT DISTURBANCE [None]
  - HYPERCHOLESTEROLAEMIA [None]
  - INCREASED APPETITE [None]
  - LIGAMENT DISORDER [None]
  - TENDONITIS [None]
